FAERS Safety Report 5802076-3 (Version None)
Quarter: 2008Q3

REPORT INFORMATION
  Report Type: 
  Country: None (occurrence: None)
  Receive Date: 20080707
  Receipt Date: 20080625
  Transmission Date: 20090109
  Serious: Yes (Hospitalization)
  Sender: FDA-Public Use
  Company Number: PHHY2008BR12174

PATIENT
  Age: 43 Year
  Sex: Female
  Weight: 56 kg

DRUGS (7)
  1. DIOVAN HCT [Suspect]
     Indication: HYPERTENSION
     Dosage: 80/12.5
  2. EXFORGE [Suspect]
     Indication: HYPERTENSION
     Dosage: 80/5 MG ONCE DAILY
     Route: 048
  3. DIOVAN [Suspect]
     Indication: HYPERTENSION
     Dosage: 80 MG, QD
     Dates: start: 20070101
  4. SYNTHROID [Concomitant]
     Indication: THYROID DISORDER
     Dosage: 100 MG, QD
     Route: 048
  5. SOMALGIN [Concomitant]
     Dosage: 325 MG, QD
     Route: 048
  6. INDAPAMIDE [Concomitant]
     Indication: HYPERTENSION
     Dosage: 1.5 MG, QD
     Route: 048
  7. PROPRANOLOL [Concomitant]
     Dosage: 2 DF, QD
     Route: 048

REACTIONS (3)
  - HEADACHE [None]
  - HYPOAESTHESIA [None]
  - ISCHAEMIA [None]
